FAERS Safety Report 16304256 (Version 3)
Quarter: 2022Q4

REPORT INFORMATION
  Report Type: Spontaneous
  Country: DE (occurrence: DE)
  Receive Date: 20190513
  Receipt Date: 20221103
  Transmission Date: 20230113
  Serious: Yes (Hospitalization, Other)
  Sender: FDA-Public Use
  Company Number: DE-TEVA-2018-DE-980304

PATIENT
  Age: 66 Year
  Sex: Male

DRUGS (26)
  1. VALSARTAN [Suspect]
     Active Substance: VALSARTAN
     Indication: Hypertension
     Dosage: UNK
     Route: 048
     Dates: start: 20150805, end: 20180530
  2. VALSARTAN [Suspect]
     Active Substance: VALSARTAN
     Dosage: UNK
     Route: 048
     Dates: start: 20180810, end: 20180907
  3. VALSARTAN [Suspect]
     Active Substance: VALSARTAN
     Dosage: 240 MILLIGRAM, QD
     Route: 048
     Dates: start: 201712, end: 20180530
  4. VALSARTAN [Suspect]
     Active Substance: VALSARTAN
     Dosage: 80 MILLIGRAM, QD
     Route: 048
     Dates: start: 20150805
  5. VALSARTAN [Suspect]
     Active Substance: VALSARTAN
     Dosage: 160 MILLIGRAM, QD
     Route: 048
  6. VALSARTAN [Suspect]
     Active Substance: VALSARTAN
     Indication: Hypertension
     Dosage: UNK
     Route: 048
     Dates: start: 20180710
  7. PANTOPRAZOLE [Concomitant]
     Active Substance: PANTOPRAZOLE
     Indication: Product used for unknown indication
     Dosage: INTAKE CYCLICAL, FREQUENCY TIME: CYCLICAL
     Route: 048
     Dates: start: 20150903
  8. BISOPROLOL [Concomitant]
     Active Substance: BISOPROLOL
     Indication: Product used for unknown indication
     Dosage: INTAKE CYCLICAL, FREQUENCY TIME: CYCLICAL
     Route: 048
     Dates: start: 20150105
  9. NITROLINGUAL [Concomitant]
     Active Substance: NITROGLYCERIN
     Indication: Product used for unknown indication
     Dosage: UNK
     Route: 065
     Dates: start: 20180322
  10. HOMEOPATHICS [Concomitant]
     Active Substance: HOMEOPATHICS
     Indication: Product used for unknown indication
     Dosage: UNK
     Route: 065
     Dates: start: 20180508
  11. SULFAMETHOXAZOLE\TRIMETHOPRIM [Concomitant]
     Active Substance: SULFAMETHOXAZOLE\TRIMETHOPRIM
     Indication: Product used for unknown indication
     Dosage: UNK
     Route: 065
     Dates: start: 20170812
  12. AMOXICILLIN\CLAVULANATE POTASSIUM [Concomitant]
     Active Substance: AMOXICILLIN\CLAVULANATE POTASSIUM
     Indication: Product used for unknown indication
     Dosage: UNK
     Route: 065
     Dates: start: 20180130
  13. PVP JOD [Concomitant]
     Indication: Product used for unknown indication
     Dosage: UNK
     Route: 065
     Dates: start: 20180508
  14. ELIQUIS [Concomitant]
     Active Substance: APIXABAN
     Indication: Product used for unknown indication
     Dosage: UNK
     Route: 065
     Dates: start: 20180116
  15. PANTOPRAZOL ACCORD [Concomitant]
     Indication: Product used for unknown indication
     Dosage: INTAKE CYCLICAL, FREQUENCY TIME: CYCLICAL
     Route: 048
     Dates: start: 20150903
  16. AMLODIPINE BESYLATE [Concomitant]
     Active Substance: AMLODIPINE BESYLATE
     Indication: Product used for unknown indication
     Dosage: UNK
     Route: 065
     Dates: start: 20180227
  17. Anaesthesulf [Concomitant]
     Indication: Product used for unknown indication
     Dosage: UNK
     Route: 065
     Dates: start: 20180426
  18. METAMIZOLE [Concomitant]
     Active Substance: METAMIZOLE
     Indication: Product used for unknown indication
     Dosage: UNK
     Route: 065
     Dates: start: 20180426
  19. HYDROCHLOROTHIAZIDE\RAMIPRIL [Concomitant]
     Active Substance: HYDROCHLOROTHIAZIDE\RAMIPRIL
     Indication: Product used for unknown indication
     Dosage: UNK
     Route: 065
     Dates: start: 20150105
  20. ACYCLOVIR [Concomitant]
     Active Substance: ACYCLOVIR
     Indication: Product used for unknown indication
     Dosage: UNK
     Route: 065
     Dates: start: 20180426
  21. OPIPRAMOL HYDROCHLORIDE [Concomitant]
     Active Substance: OPIPRAMOL HYDROCHLORIDE
     Indication: Product used for unknown indication
     Dosage: UNK
     Route: 065
     Dates: start: 20170524
  22. MULTAQ [Concomitant]
     Active Substance: DRONEDARONE
     Indication: Product used for unknown indication
     Dosage: UNK
     Route: 065
     Dates: start: 20180116
  23. NALOXONE HYDROCHLORIDE\TILIDINE HYDROCHLORIDE [Concomitant]
     Active Substance: NALOXONE HYDROCHLORIDE\TILIDINE HYDROCHLORIDE
     Indication: Product used for unknown indication
     Dosage: UNK
     Route: 065
     Dates: start: 20180530
  24. TORSEMIDE [Concomitant]
     Active Substance: TORSEMIDE
     Indication: Product used for unknown indication
     Dosage: UNK
     Route: 065
     Dates: start: 20180202
  25. ASPIRIN [Concomitant]
     Active Substance: ASPIRIN
     Indication: Product used for unknown indication
     Dosage: UNK
     Route: 065
     Dates: start: 20170524
  26. CILOXAN [Concomitant]
     Active Substance: CIPROFLOXACIN HYDROCHLORIDE
     Indication: Product used for unknown indication
     Dosage: UNK
     Route: 065
     Dates: start: 20160713

REACTIONS (30)
  - B-cell lymphoma [Unknown]
  - Immunodeficiency common variable [Unknown]
  - Herpes zoster [Unknown]
  - Pain [Unknown]
  - Atrial fibrillation [Recovered/Resolved]
  - Splenic marginal zone lymphoma stage IV [Unknown]
  - Pyrexia [Recovered/Resolved]
  - Cellulitis [Unknown]
  - Arrhythmia [Recovered/Resolved]
  - Retinopathy hypertensive [Unknown]
  - Pancreatitis [Unknown]
  - Skin neoplasm excision [Unknown]
  - Cataract [Unknown]
  - Cholangitis [Unknown]
  - Squamous cell carcinoma [Unknown]
  - Blepharochalasis [Unknown]
  - Post herpetic neuralgia [Unknown]
  - Pinguecula [Unknown]
  - Mental disorder [Unknown]
  - Tooth disorder [Unknown]
  - Swelling [Unknown]
  - Varicose vein [Unknown]
  - Lacrimation decreased [Unknown]
  - General physical health deterioration [Unknown]
  - Presbyopia [Unknown]
  - Erythema [Unknown]
  - Gait disturbance [Unknown]
  - Peripheral venous disease [Unknown]
  - Product impurity [Unknown]
  - Cholelithiasis [Unknown]

NARRATIVE: CASE EVENT DATE: 20170601
